FAERS Safety Report 8579724 (Version 9)
Quarter: 2012Q4

REPORT INFORMATION
  Report Type: 
  Country: US (occurrence: US)
  Receive Date: 20120525
  Receipt Date: 20121212
  Transmission Date: 20130627
  Serious: Yes (Congenital Anomaly, Other)
  Sender: FDA-Public Use
  Company Number: US-JNJFOC-20120518256

PATIENT
  Age: 0 None
  Sex: Male

DRUGS (12)
  1. TOPAMAX [Suspect]
     Indication: FOETAL EXPOSURE DURING PREGNANCY
     Route: 064
  2. IBUPROFEN [Suspect]
     Route: 064
  3. IBUPROFEN [Suspect]
     Indication: FOETAL EXPOSURE DURING PREGNANCY
     Route: 064
  4. AMOXICILLIN [Suspect]
     Indication: FOETAL EXPOSURE DURING PREGNANCY
     Route: 064
  5. ERRIN [Suspect]
     Indication: FOETAL EXPOSURE DURING PREGNANCY
     Route: 064
  6. IMITREX [Suspect]
     Indication: FOETAL EXPOSURE DURING PREGNANCY
     Route: 064
  7. ZOLOFT [Suspect]
     Indication: FOETAL EXPOSURE DURING PREGNANCY
     Route: 064
  8. UNKNOWN MEDICATION [Suspect]
     Indication: FOETAL EXPOSURE DURING PREGNANCY
     Route: 064
  9. CEPHALEXIN [Suspect]
     Indication: FOETAL EXPOSURE DURING PREGNANCY
     Route: 064
  10. UNSPECIFIED INGREDIENT [Suspect]
     Indication: ANAESTHESIA
     Route: 064
  11. CAFFEINE [Suspect]
     Indication: MIGRAINE
     Route: 064
  12. MULTIVITAMINS [Concomitant]
     Indication: FOETAL EXPOSURE DURING PREGNANCY
     Route: 064

REACTIONS (11)
  - Meningomyelocele [Unknown]
  - Otitis media [Unknown]
  - Epilepsy [Unknown]
  - Spina bifida [Unknown]
  - Hydrocephalus [Unknown]
  - Arnold-Chiari malformation [Unknown]
  - Neurogenic bowel [Unknown]
  - Neurogenic bladder [Unknown]
  - Emotional disorder [Unknown]
  - Body temperature fluctuation [Unknown]
  - Inguinal hernia [Unknown]
